FAERS Safety Report 9601252 (Version 2)
Quarter: 2013Q4

REPORT INFORMATION
  Report Type: Spontaneous
  Country: CN (occurrence: CN)
  Receive Date: 20131006
  Receipt Date: 20131230
  Transmission Date: 20140711
  Serious: Yes (Hospitalization)
  Sender: FDA-Public Use
  Company Number: CN-MYLANLABS-2013S1021595

PATIENT
  Age: 41 Year
  Sex: Male

DRUGS (1)
  1. VALPROIC ACID [Suspect]
     Indication: CONVULSION PROPHYLAXIS
     Dosage: 20 MG/KG/D
     Route: 048

REACTIONS (2)
  - Hypofibrinogenaemia [Recovered/Resolved]
  - Cerebral haemorrhage [Recovered/Resolved]
